FAERS Safety Report 7679960-1 (Version None)
Quarter: 2011Q3

REPORT INFORMATION
  Report Type: 
  Country: None (occurrence: None)
  Receive Date: 20110812
  Receipt Date: 20110812
  Transmission Date: 20111222
  Serious: No
  Sender: FDA-Public Use
  Company Number: US-BAYER-201013427NA

PATIENT
  Sex: Female
  Weight: 56.689 kg

DRUGS (2)
  1. DEPO SHOT [Concomitant]
  2. YAZ [Suspect]

REACTIONS (1)
  - METRORRHAGIA [None]
